FAERS Safety Report 19723028 (Version 1)
Quarter: 2021Q3

REPORT INFORMATION
  Report Type: Spontaneous
  Country: DE (occurrence: DE)
  Receive Date: 20210819
  Receipt Date: 20210819
  Transmission Date: 20211014
  Serious: Yes (Hospitalization, Other)
  Sender: FDA-Public Use
  Company Number: DE-TEVA-2021-DE-1941903

PATIENT
  Age: 80 Year
  Sex: Male

DRUGS (8)
  1. COTRIM FORTE 800MG/160MG [Suspect]
     Active Substance: SULFAMETHOXAZOLE\TRIMETHOPRIM
     Dosage: 2 DOSAGE FORMS DAILY; 160|800 MG, 1?0?1?0, ADDITIONAL INFO: MEDICATION ERRORS
     Route: 048
  2. TORASEMID [Suspect]
     Active Substance: TORSEMIDE
     Dosage: 20 MILLIGRAM DAILY; 10 MG, 1?1?0?0; ADDITIONAL INFO: MEDICATION ERRORS; UNIT DOSE: 20MG
     Route: 048
  3. METOPROLOL. [Concomitant]
     Active Substance: METOPROLOL
     Dosage: 95 MILLIGRAM DAILY; 1?0?1?0
     Route: 048
  4. LIXIANA 60MG [Concomitant]
     Active Substance: EDOXABAN TOSYLATE
     Dosage: 60 MILLIGRAM DAILY;  1?0?0?0,
     Route: 048
  5. ENTRESTO [Suspect]
     Active Substance: SACUBITRIL\VALSARTAN
     Dosage: 1 DOSAGE FORMS DAILY; 26|24 MG, 1?0?0?0; ADDITIONAL INFO: MEDICATION ERRORS
     Route: 048
  6. NATRILIX 1,5MG [Suspect]
     Active Substance: INDAPAMIDE
     Dosage: .75 MILLIGRAM DAILY; 1.5 MG, 0.5?0?0?0, ADDITIONAL INFO: MEDICATION ERRORS
     Route: 048
  7. METFORMIN [Concomitant]
     Active Substance: METFORMIN HYDROCHLORIDE
     Dosage: 500 MILLIGRAM DAILY; 1?0?0?0,
     Route: 048
  8. INSPRA [Suspect]
     Active Substance: EPLERENONE
     Dosage: 25 MILLIGRAM DAILY;  1?0?0?0,
     Route: 048

REACTIONS (4)
  - Blood creatinine increased [Unknown]
  - Medication error [Unknown]
  - Oedema peripheral [Unknown]
  - Acute kidney injury [Unknown]
